FAERS Safety Report 5724867-X (Version None)
Quarter: 2008Q2

REPORT INFORMATION
  Report Type: 
  Country: None (occurrence: None)
  Receive Date: 20080429
  Receipt Date: 20080416
  Transmission Date: 20081010
  Serious: Yes (Hospitalization, Other)
  Sender: FDA-Public Use
  Company Number: 2002JP005807

PATIENT
  Age: 3 Year
  Sex: Male
  Weight: 14.2 kg

DRUGS (9)
  1. PROGRAF [Suspect]
     Indication: BONE MARROW TRANSPLANT
     Dosage: 0.3 MG, CONTINUOUS, IV NOS, 0.15 MG, CONTINUOUS, IV NOS
     Route: 042
     Dates: start: 20020711, end: 20020712
  2. PROGRAF [Suspect]
     Indication: BONE MARROW TRANSPLANT
     Dosage: 0.3 MG, CONTINUOUS, IV NOS, 0.15 MG, CONTINUOUS, IV NOS
     Route: 042
     Dates: start: 20020713, end: 20020811
  3. SULFAMETHOXAZOLE W/TRIMETHOPRIM (SULFAMETHOXAZOLE TRIMETHOPRIM) GRANUL [Concomitant]
  4. FUNGIZONE SYRUP [Concomitant]
  5. SEPAMIT - SLOW RELEASE GRANULE [Concomitant]
  6. ACICLOVIR (ACICLOVIR) INJECTION [Concomitant]
  7. PREDONINE (PREDINSOLONE) INJECTION [Concomitant]
  8. METHOTREXATE [Concomitant]
  9. SOLU-MEDROL [Concomitant]

REACTIONS (4)
  - BLOOD PRESSURE INCREASED [None]
  - DRUG LEVEL INCREASED [None]
  - ENCEPHALOPATHY [None]
  - PYREXIA [None]
